FAERS Safety Report 17030570 (Version 5)
Quarter: 2023Q2

REPORT INFORMATION
  Report Type: Spontaneous
  Country: JP (occurrence: JP)
  Receive Date: 20191114
  Receipt Date: 20230531
  Transmission Date: 20230722
  Serious: Yes (Other)
  Sender: FDA-Public Use
  Company Number: JP-BRISTOL-MYERS SQUIBB COMPANY-BMS-2019-108822

PATIENT
  Age: 62 Year
  Sex: Male
  Weight: 47 kg

DRUGS (3)
  1. OPDIVO [Suspect]
     Active Substance: NIVOLUMAB
     Indication: Gastric cancer
     Dosage: 240 MILLIGRAM
     Route: 041
     Dates: start: 20190925, end: 20191029
  2. OPDIVO [Suspect]
     Active Substance: NIVOLUMAB
     Route: 041
     Dates: start: 20191203, end: 20220628
  3. SODIUM CHLORIDE [Concomitant]
     Active Substance: SODIUM CHLORIDE
     Indication: Gastric cancer
     Route: 042
     Dates: start: 20190925, end: 20220628

REACTIONS (2)
  - Metastatic gastric cancer [Recovering/Resolving]
  - Immune-mediated lung disease [Recovered/Resolved]

NARRATIVE: CASE EVENT DATE: 20191102
